FAERS Safety Report 19894298 (Version 1)
Quarter: 2021Q3

REPORT INFORMATION
  Report Type: Spontaneous
  Country: PL (occurrence: PL)
  Receive Date: 20210929
  Receipt Date: 20210929
  Transmission Date: 20211014
  Serious: Yes (Other)
  Sender: FDA-Public Use
  Company Number: NVSC2021PL218544

PATIENT
  Sex: Female

DRUGS (1)
  1. OSPAMOX 1000 MG [Suspect]
     Active Substance: AMOXICILLIN
     Indication: OROPHARYNGEAL PAIN
     Dosage: UNK
     Route: 065
     Dates: start: 201804

REACTIONS (14)
  - Oral fungal infection [Unknown]
  - Vulvovaginal mycotic infection [Unknown]
  - Arthralgia [Not Recovered/Not Resolved]
  - Dizziness [Unknown]
  - Vomiting [Unknown]
  - Pruritus [Unknown]
  - Dysgeusia [Unknown]
  - Renal pain [Unknown]
  - Diarrhoea [Unknown]
  - Flatulence [Unknown]
  - Pyrexia [Unknown]
  - Nausea [Unknown]
  - Urticaria [Unknown]
  - Joint swelling [Not Recovered/Not Resolved]
